FAERS Safety Report 4822898-5 (Version None)
Quarter: 2005Q4

REPORT INFORMATION
  Report Type: 
  Country: None (occurrence: None)
  Receive Date: 20051104
  Receipt Date: 20051028
  Transmission Date: 20060501
  Serious: Yes (Other)
  Sender: FDA-Public Use
  Company Number: USA-2005-0021646

PATIENT
  Sex: Female

DRUGS (3)
  1. MS CONTIN [Suspect]
     Indication: BACK PAIN
     Dosage: MG, SEE TEXT,
  2. LORTAB [Concomitant]
  3. ATIVAN [Concomitant]

REACTIONS (6)
  - DIARRHOEA [None]
  - DRUG DEPENDENCE [None]
  - MENTAL STATUS CHANGES [None]
  - NERVOUSNESS [None]
  - STOMACH DISCOMFORT [None]
  - SUICIDAL IDEATION [None]
